FAERS Safety Report 5536745-X (Version None)
Quarter: 2007Q4

REPORT INFORMATION
  Report Type: 
  Country: None (occurrence: None)
  Receive Date: 20071206
  Receipt Date: 20070425
  Transmission Date: 20080405
  Serious: Yes (Hospitalization)
  Sender: FDA-Public Use
  Company Number: US-AMGEN-US221710

PATIENT
  Sex: Female

DRUGS (2)
  1. ENBREL [Suspect]
     Indication: RHEUMATOID ARTHRITIS
     Route: 058
     Dates: start: 19990715
  2. METHOTREXATE [Concomitant]
     Route: 048
     Dates: start: 19990715

REACTIONS (6)
  - BRONCHITIS [None]
  - COUGH [None]
  - LARYNGITIS [None]
  - PAIN [None]
  - PNEUMONIA [None]
  - UPPER RESPIRATORY TRACT INFECTION [None]
